FAERS Safety Report 9568962 (Version 2)
Quarter: 2013Q3

REPORT INFORMATION
  Report Type: Spontaneous
  Country: US (occurrence: US)
  Receive Date: 20130930
  Receipt Date: 20130930
  Transmission Date: 20140515
  Serious: No
  Sender: FDA-Public Use
  Company Number: US-AMGEN-USASP2013013648

PATIENT
  Age: 67 Year
  Sex: Female
  Weight: 61.68 kg

DRUGS (20)
  1. ENBREL [Suspect]
     Indication: PRODUCT USED FOR UNKNOWN INDICATION
     Dosage: 50 MG, QWK
     Route: 058
  2. MELOXICAM [Concomitant]
     Dosage: 7.5 MG, UNK
  3. SIMVASTATIN [Concomitant]
     Dosage: 20 MG, UNK
  4. HYDROCODONE W/APAP                 /00607101/ [Concomitant]
     Dosage: 5 TO 500 MG
  5. LATANOPROST [Concomitant]
     Dosage: 0.005%, UNK
  6. SYNTHROID [Concomitant]
     Dosage: 100 MUG, UNK
  7. SULFASALAZINE [Concomitant]
     Dosage: 500 MG, UNK
  8. VALTREX [Concomitant]
     Dosage: 500 MG, UNK
  9. CALTRATE                           /00944201/ [Concomitant]
     Dosage: 600 UNK, UNK
  10. ESTROPIPATE [Concomitant]
     Dosage: 1.5 MG, UNK
  11. CENTRUM                            /02217401/ [Concomitant]
     Dosage: UNK
  12. I-VITE [Concomitant]
     Dosage: UNK
  13. FISH OIL [Concomitant]
     Dosage: UNK
  14. PREDNISONE [Concomitant]
     Dosage: 1 MG, UNK
  15. LEVOTHYROXIN [Concomitant]
     Dosage: 112 MUG, UNK
  16. METOPROLOL [Concomitant]
     Dosage: 25 MG, UNK
  17. ATORVASTATIN [Concomitant]
     Dosage: 10 MG, UNK
  18. SULFASALAZIN [Concomitant]
     Dosage: 500 MG, UNK
  19. KRILL OIL [Concomitant]
     Dosage: 1000 MG, UNK
  20. SIMPONI [Concomitant]
     Dosage: 50 MG, UNK

REACTIONS (3)
  - Drug ineffective [Unknown]
  - Local swelling [Unknown]
  - Pain in extremity [Unknown]
